FAERS Safety Report 9182146 (Version 1)
Quarter: 2013Q1

REPORT INFORMATION
  Report Type: Spontaneous
  Country: US (occurrence: None)
  Receive Date: 20120621
  Receipt Date: 20120621
  Transmission Date: 20140127
  Serious: Yes (Hospitalization, Other)
  Sender: FDA-Public Use
  Company Number: 037366

PATIENT
  Sex: Female
  Weight: 70 kg

DRUGS (11)
  1. CIMZIA [Suspect]
     Indication: RHEUMATOID ARTHRITIS
     Dosage: SHOT SUBCUTANEOUS
     Route: 058
     Dates: start: 201012, end: 201105
  2. LIPITOR [Concomitant]
  3. PRILOSEC [Concomitant]
  4. METHOTREXATE [Concomitant]
  5. FOLIC ACID [Concomitant]
  6. TRAMADOL [Concomitant]
  7. MVI [Concomitant]
  8. FLAXSEED OIL [Concomitant]
  9. VITAMIN C [Concomitant]
  10. FISH OIL [Concomitant]
  11. RESTASIS [Concomitant]

REACTIONS (4)
  - Hypertension [None]
  - Transient ischaemic attack [None]
  - Asthenia [None]
  - Hypoaesthesia [None]
